FAERS Safety Report 13908939 (Version 2)
Quarter: 2018Q2

REPORT INFORMATION
  Report Type: Spontaneous
  Country: US (occurrence: US)
  Receive Date: 20170828
  Receipt Date: 20180618
  Transmission Date: 20180711
  Serious: Yes (Hospitalization, Other)
  Sender: FDA-Public Use
  Company Number: US-ACCORD-057716

PATIENT
  Age: 63 Year
  Sex: Female

DRUGS (4)
  1. DEXTROMETHORPHAN/PROMETHAZINE [Interacting]
     Active Substance: DEXTROMETHORPHAN HYDROBROMIDE\PROMETHAZINE HYDROCHLORIDE
     Indication: COUGH
  2. AMLODIPINE [Concomitant]
     Active Substance: AMLODIPINE BESYLATE
  3. LABETALOL [Concomitant]
     Active Substance: LABETALOL\LABETALOL HYDROCHLORIDE
  4. ESCITALOPRAM [Suspect]
     Active Substance: ESCITALOPRAM OXALATE
     Indication: DEPRESSION

REACTIONS (11)
  - Alcohol withdrawal syndrome [None]
  - Sleep talking [None]
  - Hallucination, auditory [None]
  - Drug interaction [Unknown]
  - Atrioventricular block first degree [Recovered/Resolved]
  - Decreased appetite [None]
  - Dehydration [None]
  - Serotonin syndrome [Recovered/Resolved]
  - Tongue biting [None]
  - Hallucination, visual [None]
  - Viral upper respiratory tract infection [None]
